FAERS Safety Report 6265671-6 (Version None)
Quarter: 2009Q3

REPORT INFORMATION
  Report Type: 
  Country: None (occurrence: None)
  Receive Date: 20090713
  Receipt Date: 20090603
  Transmission Date: 20100115
  Serious: Yes (Other)
  Sender: FDA-Public Use
  Company Number: US-PURDUE-USA-2009-0038666

PATIENT
  Sex: Female
  Weight: 61.224 kg

DRUGS (3)
  1. OXYCONTIN [Suspect]
     Indication: ANALGESIA
     Dosage: 40 MG, QID
     Dates: start: 20020417, end: 20021229
  2. OXYCONTIN [Suspect]
     Indication: PAIN
  3. LORTAB [Concomitant]
     Dosage: 5 MG, QID

REACTIONS (5)
  - DRUG DEPENDENCE [None]
  - DRUG WITHDRAWAL SYNDROME [None]
  - NAUSEA [None]
  - SUICIDAL IDEATION [None]
  - SUICIDE ATTEMPT [None]
